FAERS Safety Report 18569865 (Version 7)
Quarter: 2023Q1

REPORT INFORMATION
  Report Type: Spontaneous
  Country: JP (occurrence: JP)
  Receive Date: 20201202
  Receipt Date: 20230206
  Transmission Date: 20230418
  Serious: Yes (Death, Hospitalization, Other)
  Sender: FDA-Public Use
  Company Number: JP-JAZZ-2020-JP-015979

PATIENT
  Age: 20 Year
  Sex: Female
  Weight: 54.9 kg

DRUGS (2)
  1. DEFITELIO [Suspect]
     Active Substance: DEFIBROTIDE SODIUM
     Indication: Venoocclusive liver disease
     Dosage: 25 MILLIGRAM/KILOGRAM/DAY
     Route: 042
     Dates: start: 20200813, end: 20200816
  2. DALTEPARIN SODIUM [Suspect]
     Active Substance: DALTEPARIN SODIUM
     Indication: Product used for unknown indication
     Dosage: UNK
     Route: 042
     Dates: start: 20200713, end: 20200813

REACTIONS (6)
  - Venoocclusive liver disease [Fatal]
  - Disease progression [Fatal]
  - Haematuria [Fatal]
  - Multiple organ dysfunction syndrome [Fatal]
  - Graft versus host disease [Fatal]
  - Off label use [Unknown]

NARRATIVE: CASE EVENT DATE: 20200813
